FAERS Safety Report 9128388 (Version 1)
Quarter: 2013Q1

REPORT INFORMATION
  Report Type: Spontaneous
  Country: US (occurrence: US)
  Receive Date: 20130228
  Receipt Date: 20130228
  Transmission Date: 20140127
  Serious: No
  Sender: FDA-Public Use
  Company Number: US-ABBOTT-12P-163-1025722-00

PATIENT
  Sex: Male
  Weight: 81.72 kg

DRUGS (3)
  1. ANDROGEL [Suspect]
     Indication: BLOOD TESTOSTERONE DECREASED
     Dosage: 4 PUMPS
     Route: 061
     Dates: start: 201209, end: 201210
  2. SIMVASTATIN [Concomitant]
     Indication: HIGH DENSITY LIPOPROTEIN DECREASED
  3. LISINOPRIL [Concomitant]
     Indication: HYPERTENSION

REACTIONS (2)
  - Blood testosterone abnormal [Not Recovered/Not Resolved]
  - Product quality issue [Not Recovered/Not Resolved]
